FAERS Safety Report 11198109 (Version 3)
Quarter: 2017Q2

REPORT INFORMATION
  Report Type: Spontaneous
  Country: CA (occurrence: CA)
  Receive Date: 20150618
  Receipt Date: 20170612
  Transmission Date: 20170829
  Serious: Yes (Hospitalization, Other)
  Sender: FDA-Public Use
  Company Number: CA-ROCHE-1594849

PATIENT
  Sex: Female

DRUGS (11)
  1. SALMETEROL XINAFOATE [Concomitant]
     Active Substance: SALMETEROL XINAFOATE
     Route: 065
  2. PREDNISONE. [Concomitant]
     Active Substance: PREDNISONE
     Dosage: 5-10 MG
     Route: 065
     Dates: start: 2016
  3. NUCALA [Concomitant]
     Active Substance: MEPOLIZUMAB
     Route: 065
     Dates: start: 201609, end: 201702
  4. XOLAIR [Suspect]
     Active Substance: OMALIZUMAB
     Indication: ASTHMA
     Route: 058
     Dates: start: 20140619
  5. XOLAIR [Suspect]
     Active Substance: OMALIZUMAB
     Route: 058
     Dates: start: 20140828, end: 20160630
  6. SEEBRI [Suspect]
     Active Substance: GLYCOPYRRONIUM
     Indication: PRODUCT USED FOR UNKNOWN INDICATION
     Route: 055
     Dates: start: 2015
  7. SEEBRI [Suspect]
     Active Substance: GLYCOPYRRONIUM
     Route: 055
     Dates: start: 20170102, end: 20170228
  8. ADVAIR HFA [Concomitant]
     Active Substance: FLUTICASONE PROPIONATE\SALMETEROL XINAFOATE
  9. SINGULAIR [Concomitant]
     Active Substance: MONTELUKAST SODIUM
  10. PULMICORT TURBUHALER [Concomitant]
     Active Substance: BUDESONIDE
     Route: 065
     Dates: start: 201604
  11. XOLAIR [Suspect]
     Active Substance: OMALIZUMAB
     Route: 058
     Dates: start: 20170530

REACTIONS (10)
  - Cough [Unknown]
  - Drug ineffective [Unknown]
  - Hypersensitivity [Unknown]
  - Dyspnoea [Unknown]
  - Asthma [Recovering/Resolving]
  - Nasal congestion [Unknown]
  - Wheezing [Unknown]
  - Blood immunoglobulin E decreased [Unknown]
  - Chest discomfort [Unknown]
  - Forced expiratory volume decreased [Unknown]
